FAERS Safety Report 21792927 (Version 1)
Quarter: 2022Q4

REPORT INFORMATION
  Report Type: Spontaneous
  Country: JP (occurrence: JP)
  Receive Date: 20221229
  Receipt Date: 20221229
  Transmission Date: 20230113
  Serious: Yes (Other)
  Sender: FDA-Public Use
  Company Number: JP-NBI-J202221519BIPI

PATIENT
  Age: 60 Year

DRUGS (1)
  1. GILOTRIF [Suspect]
     Active Substance: AFATINIB
     Indication: Product used for unknown indication
     Route: 065

REACTIONS (1)
  - Metastases to central nervous system [Unknown]
